FAERS Safety Report 8923672 (Version 1)
Quarter: 2012Q4

REPORT INFORMATION
  Report Type: Spontaneous
  Country: US (occurrence: None)
  Receive Date: 20121109
  Receipt Date: 20121109
  Transmission Date: 20130627
  Serious: Yes (Hospitalization, Other)
  Sender: FDA-Public Use
  Company Number: 2011S1000629

PATIENT
  Age: 70 Year
  Sex: Female

DRUGS (23)
  1. CUBICIN [Suspect]
     Dosage: U  UNK;UNK;UNK
     Dates: start: 20110908, end: 201109
  2. VANCOMYCIN [Suspect]
     Dosage: ;UNK;UNK
  3. ANCEF [Suspect]
     Dosage: ;UNK;UNK
  4. INDERAL [Concomitant]
  5. LACTULOSE [Concomitant]
  6. GLUCOPHAGE [Concomitant]
  7. SYNTHROID [Concomitant]
  8. PANCREASE [Concomitant]
  9. INSULIN [Concomitant]
  10. PAXIL [Concomitant]
  11. NEURONTIN [Concomitant]
  12. LISINOPRIL [Concomitant]
  13. HEPARIN [Concomitant]
  14. PROTONIX [Concomitant]
  15. OSCAL [Concomitant]
  16. VITAMIN D NOS [Concomitant]
  17. MAGNESIUM OXIDE [Suspect]
  18. SORAFENIB [Concomitant]
  19. REGLAN [Concomitant]
  20. PROCHLORPERAZINE [Concomitant]
  21. OXYCODONE [Concomitant]
  22. MOTRIN [Concomitant]
  23. AMBIEN [Concomitant]

REACTIONS (6)
  - Eosinophilic pneumonia [None]
  - Leukopenia [None]
  - Blood creatinine increased [None]
  - Dyspnoea [None]
  - Pyrexia [None]
  - Lung infiltration [None]
